FAERS Safety Report 18429619 (Version 1)
Quarter: 2020Q4

REPORT INFORMATION
  Report Type: Spontaneous
  Country: CN (occurrence: CN)
  Receive Date: 20201026
  Receipt Date: 20201026
  Transmission Date: 20210114
  Serious: Yes (Life-Threatening)
  Sender: FDA-Public Use
  Company Number: CN-ALLERGAN-2040482US

PATIENT
  Sex: Female
  Weight: 56 kg

DRUGS (1)
  1. BOTOX [Suspect]
     Active Substance: ONABOTULINUMTOXINA
     Indication: SKIN WRINKLING
     Dosage: 20 UNITS, SINGLE
     Route: 023
     Dates: start: 20201019, end: 20201019

REACTIONS (2)
  - Tachycardia [Recovered/Resolved]
  - Chest discomfort [Recovered/Resolved]

NARRATIVE: CASE EVENT DATE: 20201019
